FAERS Safety Report 11538645 (Version 1)
Quarter: 2015Q3

REPORT INFORMATION
  Report Type: Report from Study
  Country: US (occurrence: US)
  Receive Date: 20150923
  Receipt Date: 20150923
  Transmission Date: 20151125
  Serious: Yes (Other)
  Sender: FDA-Public Use
  Company Number: US-ROCHE-1630898

PATIENT
  Age: 44 Year
  Sex: Male

DRUGS (1)
  1. ACTEMRA [Suspect]
     Active Substance: TOCILIZUMAB
     Indication: RHEUMATOID ARTHRITIS
     Route: 042
     Dates: start: 20150730

REACTIONS (13)
  - Blindness [Recovered/Resolved]
  - Peripheral swelling [Unknown]
  - Influenza like illness [Unknown]
  - Hypoaesthesia [Unknown]
  - Nausea [Unknown]
  - Chest discomfort [Recovered/Resolved]
  - Anaphylactic reaction [Unknown]
  - Dyspnoea [Unknown]
  - Heart rate increased [Recovered/Resolved]
  - Flushing [Recovered/Resolved]
  - Rash vesicular [Recovered/Resolved]
  - Throat tightness [Recovered/Resolved]
  - Swelling face [Unknown]

NARRATIVE: CASE EVENT DATE: 20150827
